FAERS Safety Report 10967168 (Version 2)
Quarter: 2015Q2

REPORT INFORMATION
  Report Type: Report from Study
  Country: JP (occurrence: JP)
  Receive Date: 20150330
  Receipt Date: 20150402
  Transmission Date: 20150821
  Serious: Yes (Death)
  Sender: FDA-Public Use
  Company Number: JP-PFIZER INC-2015106866

PATIENT
  Age: 88 Year
  Sex: Male
  Weight: 40 kg

DRUGS (13)
  1. TIGECYCLINE [Suspect]
     Active Substance: TIGECYCLINE
     Indication: INFECTION
     Dosage: 100 MG, SINGLE, 60 MINUTES INFUSION
     Route: 041
     Dates: start: 20140218, end: 20140219
  2. ONOACT [Concomitant]
     Active Substance: LANDIOLOL HYDROCHLORIDE
     Dosage: UNK
     Dates: start: 20140220
  3. HERBESSER ^TANABE^ [Concomitant]
     Dosage: UNK
     Dates: start: 20140220
  4. NOR ADRENALIN [Concomitant]
     Dosage: UNK
     Dates: start: 20140215
  5. PRECEDEX [Concomitant]
     Active Substance: DEXMEDETOMIDINE HYDROCHLORIDE
     Dosage: UNK
     Route: 042
     Dates: start: 20140217
  6. KENKETSU ALBUMIN 25% [Concomitant]
     Dosage: UNK
     Route: 042
     Dates: start: 20140218
  7. FENTANYL. [Concomitant]
     Active Substance: FENTANYL
     Dosage: UNK
     Dates: start: 20140118
  8. HANP [Concomitant]
     Active Substance: CARPERITIDE
     Dosage: UNK
     Dates: start: 20140218
  9. TIGECYCLINE [Suspect]
     Active Substance: TIGECYCLINE
     Dosage: 50 MG, 2X/DAY, EVERY 12 HOURS, 60 MINUTES INFUSION
     Route: 041
     Dates: start: 20140219, end: 20140224
  10. TIGECYCLINE [Suspect]
     Active Substance: TIGECYCLINE
     Dosage: 50 MG, SINGLE, 60 MINUTES INFUSION
     Route: 041
     Dates: start: 20140225, end: 20140225
  11. CUBICIN [Concomitant]
     Active Substance: DAPTOMYCIN
     Dosage: UNK
     Route: 042
     Dates: start: 20140220
  12. HEPARIN SODIUM. [Concomitant]
     Active Substance: HEPARIN SODIUM
     Dosage: UNK
     Dates: start: 20140219
  13. MEROPEN [Concomitant]
     Active Substance: MEROPENEM
     Dosage: UNK
     Route: 041
     Dates: start: 20140204

REACTIONS (1)
  - Thermal burn [Fatal]
